FAERS Safety Report 5376420-8 (Version None)
Quarter: 2007Q3

REPORT INFORMATION
  Report Type: 
  Country: None (occurrence: None)
  Receive Date: 20070702
  Receipt Date: 20070621
  Transmission Date: 20080115
  Serious: Yes (Other)
  Sender: FDA-Public Use
  Company Number: US-PFIZER INC-2007051593

PATIENT
  Sex: Male
  Weight: 90.7 kg

DRUGS (1)
  1. LYRICA [Suspect]
     Indication: NEUROPATHY
     Dates: start: 20070601, end: 20070619

REACTIONS (2)
  - BLOOD POTASSIUM INCREASED [None]
  - BRADYCARDIA [None]
